FAERS Safety Report 7238026-5 (Version None)
Quarter: 2011Q1

REPORT INFORMATION
  Report Type: 
  Country: None (occurrence: None)
  Receive Date: 20110121
  Receipt Date: 20110118
  Transmission Date: 20110831
  Serious: Yes (Other)
  Sender: FDA-Public Use
  Company Number: A0906918A

PATIENT
  Age: 57 Year
  Sex: Female

DRUGS (4)
  1. ALBUTEROL [Concomitant]
  2. DULCOLAX [Concomitant]
  3. SPIRIVA [Concomitant]
  4. ADVAIR [Suspect]
     Indication: CHRONIC OBSTRUCTIVE PULMONARY DISEASE
     Dosage: 1PUFF TWICE PER DAY
     Route: 055
     Dates: start: 20030101

REACTIONS (8)
  - DIVERTICULITIS [None]
  - JOINT CREPITATION [None]
  - CHOKING [None]
  - VISION BLURRED [None]
  - TINNITUS [None]
  - OSTEOPOROSIS [None]
  - EAR DISCOMFORT [None]
  - EYE PAIN [None]
